FAERS Safety Report 7534190-9 (Version None)
Quarter: 2011Q2

REPORT INFORMATION
  Report Type: 
  Country: None (occurrence: None)
  Receive Date: 20110608
  Receipt Date: 20061115
  Transmission Date: 20111010
  Serious: Yes (Hospitalization, Other)
  Sender: FDA-Public Use
  Company Number: PHFR2006GB03319

PATIENT
  Sex: Female

DRUGS (3)
  1. OLANZAPINE [Concomitant]
     Route: 065
  2. CLOZAPINE [Suspect]
     Indication: SCHIZOPHRENIA
     Route: 048
     Dates: start: 20061101, end: 20061105
  3. ATENOLOL [Concomitant]
     Dosage: 25 MG, DAILY
     Route: 065

REACTIONS (11)
  - DIZZINESS [None]
  - WHITE BLOOD CELL COUNT INCREASED [None]
  - DIARRHOEA [None]
  - BODY TEMPERATURE INCREASED [None]
  - VOMITING [None]
  - HAEMATEMESIS [None]
  - DEHYDRATION [None]
  - BLOOD SODIUM DECREASED [None]
  - CONVULSION [None]
  - OXYGEN SATURATION DECREASED [None]
  - NEUTROPHIL COUNT INCREASED [None]
